FAERS Safety Report 6459888-5 (Version None)
Quarter: 2009Q4

REPORT INFORMATION
  Report Type: 
  Country: None (occurrence: None)
  Receive Date: 20091128
  Receipt Date: 20091120
  Transmission Date: 20100525
  Serious: Yes (Other)
  Sender: FDA-Public Use
  Company Number: IT-ALLERGAN-0906433US

PATIENT
  Age: 73 Year
  Sex: Female

DRUGS (11)
  1. BIMATOPROST AND TIMOLOL MALEATE [Suspect]
     Indication: OPEN ANGLE GLAUCOMA
     Dosage: UNK, QD
     Route: 047
     Dates: start: 20070101, end: 20081201
  2. BIMATOPROST AND TIMOLOL MALEATE [Suspect]
     Dosage: UNK
     Route: 047
     Dates: start: 20081201, end: 20091101
  3. LUMIGAN [Suspect]
     Indication: OPEN ANGLE GLAUCOMA
     Dosage: UNK, QD
     Route: 047
     Dates: start: 20040201, end: 20070101
  4. LUMIGAN [Suspect]
     Route: 047
     Dates: start: 20081201
  5. TIMOLOL MALEATE SOL [Suspect]
     Indication: OPEN ANGLE GLAUCOMA
     Dosage: 1 GTT, QD
     Route: 047
     Dates: start: 19960701, end: 20070101
  6. AMIODARONE HCL [Suspect]
     Indication: ARRHYTHMIA
     Dosage: 400 MG, TID
     Dates: start: 20081001
  7. XALATAN [Concomitant]
     Indication: GLAUCOMA
     Dosage: UNK, QD
     Route: 047
     Dates: start: 19980201, end: 20040201
  8. ENAPREN [Concomitant]
     Indication: HYPERTENSION
     Dosage: 20 MG, UNK
     Dates: start: 20020101, end: 20081001
  9. KARVEA [Concomitant]
     Indication: HYPERTENSION
     Dosage: 150 MG, UNK
     Dates: start: 20081001
  10. ASPIRIN [Concomitant]
     Indication: ARRHYTHMIA
     Dates: start: 20060101
  11. RYTMONORM [Concomitant]
     Indication: ARRHYTHMIA
     Dosage: 300 MG, PRN
     Dates: start: 20060601, end: 20080801

REACTIONS (3)
  - ARRHYTHMIA [None]
  - SHOCK [None]
  - SYNCOPE [None]
